FAERS Safety Report 8102073-1 (Version None)
Quarter: 2012Q1

REPORT INFORMATION
  Report Type: 
  Country: None (occurrence: None)
  Receive Date: 20120131
  Receipt Date: 20120120
  Transmission Date: 20120608
  Serious: Yes (Disabling)
  Sender: FDA-Public Use
  Company Number: JP-MERCK-1201USA03301

PATIENT
  Age: 74 Year
  Sex: Female

DRUGS (7)
  1. FOSAMAX [Suspect]
     Indication: OSTEOPOROSIS
     Route: 048
  2. ASPARA CA [Concomitant]
     Indication: OSTEOPOROSIS
     Route: 048
  3. JUVELA N [Concomitant]
     Indication: PERIPHERAL CIRCULATORY FAILURE
     Route: 048
  4. SYNVISC [Suspect]
     Indication: OSTEOARTHRITIS
     Dosage: INTRAARTICULAR
     Route: 051
     Dates: start: 20110926, end: 20110926
  5. DEPAS [Concomitant]
     Indication: INSOMNIA
     Route: 048
  6. BOI-OGI-TO [Concomitant]
     Indication: OEDEMA
     Route: 048
  7. PEPCID RPD [Concomitant]
     Indication: GASTRITIS
     Route: 048

REACTIONS (1)
  - JOINT EFFUSION [None]
